FAERS Safety Report 7343288-X (Version None)
Quarter: 2011Q1

REPORT INFORMATION
  Report Type: 
  Country: None (occurrence: None)
  Receive Date: 20110310
  Receipt Date: 20110308
  Transmission Date: 20110831
  Serious: Yes (Life-Threatening, Hospitalization)
  Sender: FDA-Public Use
  Company Number: ES-PFIZER INC-2011050182

PATIENT
  Age: 87 Year
  Sex: Female

DRUGS (8)
  1. LEVOTHROID [Concomitant]
     Indication: HYPOTHYROIDISM
     Dosage: 125 UG, UNK
     Route: 048
     Dates: start: 19700101
  2. ADIRO [Concomitant]
     Indication: MYOCARDIAL ISCHAEMIA
     Dosage: 100 MG, 1X/DAY
     Route: 048
     Dates: start: 19920101, end: 20101101
  3. SUTRIL [Concomitant]
     Indication: HYPERTENSION
     Dosage: 10 MG, 1X/DAY
     Route: 048
     Dates: start: 20080101, end: 20101101
  4. MANIDON HTA [Concomitant]
     Indication: HYPERTENSION
     Dosage: 240 MG, 1X/DAY
     Route: 048
     Dates: start: 20080101, end: 20101101
  5. LOVASTATIN [Concomitant]
     Indication: DYSLIPIDAEMIA
     Dosage: 20 MG, 1X/DAY
     Route: 048
     Dates: start: 19900101, end: 20101101
  6. ALDACTONE [Suspect]
     Indication: HYPERTENSION
     Dosage: 25 MG, 1X/DAY
     Route: 048
     Dates: start: 20070101, end: 20101101
  7. PARAPRES [Interacting]
     Indication: HYPERTENSION
     Dosage: 32 MG, 1X/DAY
     Route: 048
     Dates: start: 20091101, end: 20101101
  8. METFORMIN HCL [Concomitant]
     Indication: DIABETES MELLITUS
     Dosage: 2.5 G, UNK
     Dates: start: 20040101, end: 20101101

REACTIONS (9)
  - CARDIO-RESPIRATORY ARREST [None]
  - DRUG INTERACTION [None]
  - DIZZINESS [None]
  - LOSS OF CONSCIOUSNESS [None]
  - HYPERHIDROSIS [None]
  - GRAND MAL CONVULSION [None]
  - VOMITING [None]
  - CARDIAC FAILURE CONGESTIVE [None]
  - HYPERKALAEMIA [None]
